FAERS Safety Report 8406769 (Version 2)
Quarter: 2015Q2

REPORT INFORMATION
  Report Type: Spontaneous
  Country: US (occurrence: US)
  Receive Date: 20120215
  Receipt Date: 20150428
  Transmission Date: 20150821
  Serious: Yes (Hospitalization, Other)
  Sender: FDA-Public Use
  Company Number: US-ROCHE-793802

PATIENT
  Sex: Female
  Weight: 68.1 kg

DRUGS (3)
  1. ZOLOFT [Concomitant]
     Active Substance: SERTRALINE HYDROCHLORIDE
  2. ACCUTANE [Suspect]
     Active Substance: ISOTRETINOIN
     Indication: ACNE
     Dosage: FRO SIX MONTH
     Route: 065
     Dates: start: 1980, end: 1982
  3. ACCUTANE [Suspect]
     Active Substance: ISOTRETINOIN
     Dosage: FOR SIX MONTH
     Route: 065

REACTIONS (5)
  - Colitis ulcerative [Unknown]
  - Irritable bowel syndrome [Unknown]
  - Small intestinal obstruction [Unknown]
  - Inflammatory bowel disease [Unknown]
  - Depression [Unknown]

NARRATIVE: CASE EVENT DATE: 1982
